FAERS Safety Report 23652684 (Version 1)
Quarter: 2024Q1

REPORT INFORMATION
  Report Type: Spontaneous
  Country: US (occurrence: US)
  Receive Date: 20240320
  Receipt Date: 20240320
  Transmission Date: 20240410
  Serious: Yes (Death, Other)
  Sender: FDA-Public Use
  Company Number: US-Accord-413855

PATIENT
  Age: 67 Year
  Sex: Female

DRUGS (14)
  1. BENDAMUSTINE [Suspect]
     Active Substance: BENDAMUSTINE
     Indication: Chronic lymphocytic leukaemia stage 3
  2. CISPLATIN [Suspect]
     Active Substance: CISPLATIN
     Indication: Chronic lymphocytic leukaemia stage 3
  3. GEMCITABINE [Suspect]
     Active Substance: GEMCITABINE
     Indication: Chronic lymphocytic leukaemia stage 3
  4. DEXAMETHASONE [Suspect]
     Active Substance: DEXAMETHASONE
     Indication: Chronic lymphocytic leukaemia stage 3
  5. NIVOLUMAB [Suspect]
     Active Substance: NIVOLUMAB
     Indication: Chronic lymphocytic leukaemia stage 3
  6. BRENTUXIMAB VEDOTIN [Suspect]
     Active Substance: BRENTUXIMAB VEDOTIN
     Indication: Chronic lymphocytic leukaemia stage 3
  7. RITUXIMAB [Suspect]
     Active Substance: RITUXIMAB
     Indication: Chronic lymphocytic leukaemia stage 3
  8. CYCLOPHOSPHAMIDE [Suspect]
     Active Substance: CYCLOPHOSPHAMIDE
     Indication: Chronic lymphocytic leukaemia stage 3
  9. VINCRISTINE [Suspect]
     Active Substance: VINCRISTINE
     Indication: Chronic lymphocytic leukaemia stage 3
  10. PREDNISONE [Suspect]
     Active Substance: PREDNISONE
     Indication: Chronic lymphocytic leukaemia stage 3
  11. BRENTUXIMAB VEDOTIN [Concomitant]
     Active Substance: BRENTUXIMAB VEDOTIN
     Indication: Chronic lymphocytic leukaemia stage 3
  12. DOXORUBICIN [Concomitant]
     Active Substance: DOXORUBICIN
     Indication: Chronic lymphocytic leukaemia stage 3
  13. VINBLASTINE [Concomitant]
     Active Substance: VINBLASTINE
     Indication: Chronic lymphocytic leukaemia stage 3
  14. DACARBAZINE [Concomitant]
     Active Substance: DACARBAZINE
     Indication: Chronic lymphocytic leukaemia stage 3

REACTIONS (3)
  - Pancytopenia [Fatal]
  - Febrile neutropenia [Unknown]
  - Off label use [Unknown]
